FAERS Safety Report 9905793 (Version 1)
Quarter: 2014Q1

REPORT INFORMATION
  Report Type: Not Available
  Country: NL (occurrence: NL)
  Receive Date: 20140218
  Receipt Date: 20140218
  Transmission Date: 20141002
  Serious: Yes (Life-Threatening)
  Sender: FDA-Public Use
  Company Number: NL-IAC JAPAN XML-GBR-2014-0017097

PATIENT
  Age: 70 Year
  Sex: Female

DRUGS (18)
  1. BUTRANS 5 MICROGRAM/UUR [Suspect]
     Indication: PAIN
     Dosage: 5 MCG/HR, WEEKLY
     Route: 062
     Dates: start: 20140120, end: 20140125
  2. METOCLOPRAMIDE [Concomitant]
     Dosage: 10 MG, PRN
  3. IMPORTAL EX-LAX [Concomitant]
     Dosage: 10 MG, DAILY
  4. CISORDINOL                         /00876702/ [Concomitant]
     Dosage: 2 MG, BID
  5. NOVORAPID [Concomitant]
     Dosage: 3 ML,  1 DF, TID
  6. ACETYLSALICYLZUUR [Concomitant]
     Dosage: 80 MG, DAILY
  7. MONOCEDOCARD [Concomitant]
     Dosage: 25 MG, DAILY
  8. OMEPRAZOL                          /00661201/ [Concomitant]
     Dosage: 20 MG, DAILY
  9. PROPRANOLOL [Concomitant]
     Dosage: 80 MG, DAILY
  10. PARACETAMOL [Concomitant]
     Dosage: 500 MG TAB , 1000 MG, TID
  11. SALBUTAMOL [Concomitant]
     Dosage: 100 MCG, PRN
  12. SPIRONOLACTON [Concomitant]
     Dosage: 100 MG, DAILY
  13. EUTHYROX [Concomitant]
     Dosage: 125 MCG, DAILY
  14. EUTHYROX [Concomitant]
     Dosage: 50 MCG, DAILY,
  15. MICONAZOLNITRAAT [Concomitant]
     Dosage: 20/10 MG/G , DAILY
  16. FUROSEMIDE [Concomitant]
     Dosage: 40 MG, DAILY
  17. SERETIDE [Concomitant]
     Dosage: 25/250 MCG
  18. SPIRIVA [Concomitant]
     Dosage: 2.5 MCG 1 DF TWICE DAILY

REACTIONS (1)
  - Delirium [Not Recovered/Not Resolved]
